FAERS Safety Report 16814711 (Version 4)
Quarter: 2020Q3

REPORT INFORMATION
  Report Type: Spontaneous
  Country: DE (occurrence: DE)
  Receive Date: 20190917
  Receipt Date: 20200806
  Transmission Date: 20201102
  Serious: Yes (Death, Life-Threatening, Other)
  Sender: FDA-Public Use
  Company Number: DE-SA-2019SA256288

PATIENT

DRUGS (10)
  1. METANDIENONE [Suspect]
     Active Substance: METHANDROSTENOLONE
     Indication: MUSCLE BUILDING THERAPY
     Dosage: UNK
  2. TESTOSTERONE ENANTATE [Suspect]
     Active Substance: TESTOSTERONE
     Indication: MUSCLE BUILDING THERAPY
     Dosage: AMPULE
  3. TESTOSTERONE PROPIONATE. [Suspect]
     Active Substance: TESTOSTERONE PROPIONATE
     Indication: PERFORMANCE ENHANCING PRODUCT USE
     Dosage: AMPULE
  4. LIOTHYRONINE HYDROCHLORIDE [Suspect]
     Active Substance: LIOTHYRONINE
     Indication: DRUG ABUSE
     Dosage: UNK (THYBON 100 HENNING)
  5. DROSTANOLONE [Suspect]
     Active Substance: DROMOSTANOLONE
     Indication: MUSCLE BUILDING THERAPY
     Dosage: UNK
  6. TRENBOLONE ACETATE [Suspect]
     Active Substance: TRENBOLONE ACETATE
     Indication: MUSCLE BUILDING THERAPY
     Dosage: UNK
  7. SPIROPENT [Suspect]
     Active Substance: CLENBUTEROL HYDROCHLORIDE
     Dosage: UNK
  8. STANOL [STANOZOLOL] [Suspect]
     Active Substance: STANOZOLOL
     Indication: MUSCLE BUILDING THERAPY
     Dosage: UNK
  9. CLOMIFENE CITRATE [Suspect]
     Active Substance: CLOMIPHENE
     Indication: MUSCLE BUILDING THERAPY
     Dosage: UNK
  10. CLOMIFEN?RATIOPHARM [Suspect]
     Active Substance: CLOMIPHENE
     Indication: MUSCLE BUILDING THERAPY
     Dosage: UNK

REACTIONS (11)
  - Dyspnoea [Fatal]
  - Ventricular enlargement [Fatal]
  - Brain oedema [Fatal]
  - Pulmonary congestion [Fatal]
  - Intentional product misuse [Fatal]
  - Pulmonary haemorrhage [Fatal]
  - Drug abuse [Fatal]
  - Cardiac failure [Fatal]
  - Visceral congestion [Fatal]
  - Pulmonary oedema [Fatal]
  - Left ventricular hypertrophy [Fatal]
